FAERS Safety Report 17741795 (Version 2)
Quarter: 2020Q2

REPORT INFORMATION
  Report Type: Report from Study
  Country: US (occurrence: US)
  Receive Date: 20200504
  Receipt Date: 20200511
  Transmission Date: 20200714
  Serious: Yes (Other)
  Sender: FDA-Public Use
  Company Number: US-BEH-2020116753

PATIENT
  Age: 32 Year
  Sex: Female
  Weight: 107.94 kg

DRUGS (2)
  1. HAEGARDA [Suspect]
     Active Substance: HUMAN C1-ESTERASE INHIBITOR
     Indication: PROPHYLAXIS
     Dosage: 12 MILLILITER, BIW
     Route: 058
     Dates: start: 20190702
  2. HAEGARDA [Suspect]
     Active Substance: HUMAN C1-ESTERASE INHIBITOR
     Indication: HEREDITARY ANGIOEDEMA
     Dosage: 5000 (UNITS NOT REPORTED), ALSO REPORTED AS 1 OF EACH 2000 AND 3000 EVERY 3 OR 4 DAYS
     Route: 058
     Dates: start: 20190701

REACTIONS (3)
  - Product supply issue [Not Recovered/Not Resolved]
  - Inappropriate schedule of product administration [Not Recovered/Not Resolved]
  - Hereditary angioedema [Not Recovered/Not Resolved]

NARRATIVE: CASE EVENT DATE: 20200429
